FAERS Safety Report 8481200-0 (Version None)
Quarter: 2012Q3

REPORT INFORMATION
  Report Type: 
  Country: None (occurrence: None)
  Receive Date: 20120702
  Receipt Date: 20120629
  Transmission Date: 20120928
  Serious: Yes (Death)
  Sender: FDA-Public Use
  Company Number: PHHY2012CA049074

PATIENT
  Sex: Female

DRUGS (4)
  1. ZOMETA [Suspect]
     Indication: METASTASES TO BONE
     Dosage: 4 MG, EVERY 4 WEEKS
     Route: 042
     Dates: start: 20111024
  2. ANALGESICS [Concomitant]
  3. ARIMIDEX [Concomitant]
  4. ZOMETA [Suspect]
     Dosage: 4 MG, QMO
     Route: 042

REACTIONS (1)
  - DEATH [None]
